FAERS Safety Report 14348511 (Version 2)
Quarter: 2018Q1

REPORT INFORMATION
  Report Type: Spontaneous
  Country: CN (occurrence: CN)
  Receive Date: 20180103
  Receipt Date: 20180118
  Transmission Date: 20180509
  Serious: Yes (Death)
  Sender: FDA-Public Use
  Company Number: CN-ASTRAZENECA-2018SE00613

PATIENT
  Age: 52 Year
  Sex: Male

DRUGS (8)
  1. ASMETON [Concomitant]
     Active Substance: AMINOPHYLLINE\CHLORPHENIRAMINE MALEATE\METHOXYPHENAMINE HYDROCHLORIDE\NOSCAPINE
  2. FUROSEMIDE. [Concomitant]
     Active Substance: FUROSEMIDE
  3. LIPITOR [Concomitant]
     Active Substance: ATORVASTATIN CALCIUM
  4. BRILINTA [Suspect]
     Active Substance: TICAGRELOR
     Dosage: 180.0MG UNKNOWN
     Route: 048
  5. TIROFIBAN [Concomitant]
     Active Substance: TIROFIBAN
  6. BRILINTA [Suspect]
     Active Substance: TICAGRELOR
     Dosage: 90.0MG UNKNOWN
     Route: 048
     Dates: end: 20171227
  7. BAYASPIRIN [Concomitant]
     Active Substance: ASPIRIN
     Dosage: 300MG 1 TAB DAILY
     Dates: end: 20171227
  8. CRAVIT [Concomitant]
     Active Substance: LEVOFLOXACIN

REACTIONS (3)
  - Liver injury [Fatal]
  - Transaminases increased [Fatal]
  - Renal impairment [Fatal]

NARRATIVE: CASE EVENT DATE: 20171226
